FAERS Safety Report 8699366 (Version 2)
Quarter: 2013Q4

REPORT INFORMATION
  Report Type: Spontaneous
  Country: US (occurrence: US)
  Receive Date: 20120802
  Receipt Date: 20131031
  Transmission Date: 20140711
  Serious: Yes (Death, Hospitalization, Other)
  Sender: FDA-Public Use
  Company Number: US-009507513-86040306

PATIENT
  Age: 66 Year
  Sex: Male

DRUGS (5)
  1. DECADRON [Suspect]
     Dosage: 16 MG, UNK
     Route: 048
  2. MK-0152 [Concomitant]
     Indication: HYPERTENSION
  3. DIAGNOSTIC RADIOPHARMACEUTICAL (UNSPECIFIED) [Concomitant]
  4. TRIAMTERENE [Concomitant]
  5. INSULIN [Concomitant]

REACTIONS (14)
  - Strongyloidiasis [Fatal]
  - Abdominal distension [Unknown]
  - Abdominal pain [Unknown]
  - Decreased appetite [Unknown]
  - Constipation [Unknown]
  - Pyrexia [Unknown]
  - Gastrointestinal haemorrhage [Unknown]
  - Syncope [Unknown]
  - Ileus paralytic [Unknown]
  - General symptom [Fatal]
  - Diabetes mellitus [Unknown]
  - Neoplasm malignant [Unknown]
  - Prostate cancer [Unknown]
  - Acute respiratory distress syndrome [Fatal]
